FAERS Safety Report 6502374-4 (Version None)
Quarter: 2009Q4

REPORT INFORMATION
  Report Type: 
  Country: None (occurrence: None)
  Receive Date: 20091216
  Receipt Date: 20091123
  Transmission Date: 20100525
  Serious: No
  Sender: FDA-Public Use
  Company Number: US-ABBOTT-09P-163-0611313-00

PATIENT
  Sex: Female
  Weight: 68.1 kg

DRUGS (5)
  1. TRILIPIX [Suspect]
     Indication: LOW DENSITY LIPOPROTEIN INCREASED
     Dates: start: 20090818
  2. TRILIPIX [Suspect]
     Indication: BLOOD TRIGLYCERIDES INCREASED
  3. VOLTAREN [Concomitant]
     Indication: ARTHRITIS
  4. ANTACID TAB [Concomitant]
     Indication: DYSPEPSIA
  5. VITAMINS [Concomitant]
     Indication: VITAMIN SUPPLEMENTATION

REACTIONS (2)
  - BREAST MASS [None]
  - HOT FLUSH [None]
